FAERS Safety Report 9959548 (Version 1)
Quarter: 2014Q1

REPORT INFORMATION
  Report Type: Report from Study
  Country: US (occurrence: US)
  Receive Date: 20140305
  Receipt Date: 20140305
  Transmission Date: 20141002
  Serious: No
  Sender: FDA-Public Use
  Company Number: US-ABBVIE-13P-163-1105829-00

PATIENT
  Age: 21 Year
  Sex: Female

DRUGS (6)
  1. HUMIRA [Suspect]
     Dosage: DAY 1 LOADING DOSE
     Dates: start: 201304
  2. HUMIRA [Suspect]
  3. HUMIRA [Suspect]
  4. YASMIN [Concomitant]
     Indication: CONTRACEPTION
  5. ALBUTEROL HFA [Concomitant]
     Indication: ASTHMA
  6. NEXIUM [Concomitant]
     Indication: GASTRIC ULCER

REACTIONS (5)
  - Injection site erythema [Not Recovered/Not Resolved]
  - Injection site swelling [Not Recovered/Not Resolved]
  - Injection site warmth [Not Recovered/Not Resolved]
  - Asthenia [Not Recovered/Not Resolved]
  - Dyspepsia [Not Recovered/Not Resolved]
